FAERS Safety Report 17131006 (Version 3)
Quarter: 2020Q1

REPORT INFORMATION
  Report Type: Spontaneous
  Country: JP (occurrence: JP)
  Receive Date: 20191209
  Receipt Date: 20200130
  Transmission Date: 20200409
  Serious: Yes (Death, Other)
  Sender: FDA-Public Use
  Company Number: JP-GILEAD-2019-0441161

PATIENT
  Age: 58 Year
  Sex: Male
  Weight: 68.1 kg

DRUGS (13)
  1. EPCLUSA [Suspect]
     Active Substance: SOFOSBUVIR\VELPATASVIR
     Indication: HEPATIC CIRRHOSIS
  2. FOLIAMIN [Concomitant]
     Active Substance: FOLIC ACID
     Dosage: 10 MG, BID
     Route: 048
     Dates: start: 20190719, end: 20191122
  3. AZILVA [Concomitant]
     Active Substance: AZILSARTAN KAMEDOXOMIL
     Dosage: 40 MG, QD
     Route: 048
     Dates: start: 20190725, end: 20191122
  4. HUMALOG [Concomitant]
     Active Substance: INSULIN LISPRO
     Dosage: 12 U TID
     Route: 058
     Dates: start: 20190419, end: 20191122
  5. LIVACT [AMINO ACIDS NOS] [Concomitant]
     Dosage: 1 DOSAGE FORM, TID
     Route: 048
     Dates: start: 20190604, end: 20191122
  6. GASMOTIN [Concomitant]
     Active Substance: MOSAPRIDE CITRATE
     Dosage: 1 DOSAGE FORM, TID
     Route: 048
     Dates: start: 20190713, end: 20191122
  7. MOSAPRIDE CITRATE [Concomitant]
     Active Substance: MOSAPRIDE CITRATE
  8. SPIRONOLACTONE. [Concomitant]
     Active Substance: SPIRONOLACTONE
     Dosage: 25 MG, QD
     Route: 048
     Dates: start: 20190713, end: 20191122
  9. TRAZENTA [Concomitant]
     Active Substance: LINAGLIPTIN
     Dosage: 5 MG, QD
     Route: 048
     Dates: start: 20190409, end: 20191122
  10. EPCLUSA [Suspect]
     Active Substance: SOFOSBUVIR\VELPATASVIR
     Indication: HEPATITIS C
     Dosage: 1 DOSAGE FORM, QD
     Route: 048
     Dates: start: 20191119, end: 20191122
  11. INDERAL [Concomitant]
     Active Substance: PROPRANOLOL HYDROCHLORIDE
     Dosage: 10 MG, QD
     Route: 048
     Dates: start: 20190717, end: 20191122
  12. NEXIUM [Concomitant]
     Active Substance: ESOMEPRAZOLE MAGNESIUM
     Dosage: 20 MG, QD
     Route: 048
     Dates: start: 20190604, end: 20191122
  13. SAMSCA [Concomitant]
     Active Substance: TOLVAPTAN
     Dosage: 7.5 MG, QD
     Route: 048
     Dates: start: 20190725, end: 20191122

REACTIONS (2)
  - Acute respiratory distress syndrome [Fatal]
  - Pulmonary oedema [Fatal]

NARRATIVE: CASE EVENT DATE: 20191122
